FAERS Safety Report 7609144-4 (Version None)
Quarter: 2011Q3

REPORT INFORMATION
  Report Type: 
  Country: None (occurrence: None)
  Receive Date: 20110714
  Receipt Date: 20110705
  Transmission Date: 20111222
  Serious: Yes (Life-Threatening, Hospitalization, Other)
  Sender: FDA-Public Use
  Company Number: JP-ABBOTT-11P-087-0836721-00

PATIENT
  Sex: Male

DRUGS (11)
  1. TELMISARTAN [Concomitant]
     Indication: HYPERTENSION
     Dosage: DAILY DOSE: 80MG
     Route: 048
  2. ATORVASTATIN CALCIUM [Concomitant]
     Indication: HYPERLIPIDAEMIA
     Route: 048
  3. VOGLIBOSE [Concomitant]
     Indication: DIABETES MELLITUS
     Route: 048
  4. HUMIRA [Suspect]
     Indication: PSORIASIS
     Route: 058
     Dates: start: 20100823, end: 20100823
  5. METOPROLOL TARTRATE [Concomitant]
     Indication: HYPERTENSION
     Dosage: DAILY DOSE: 120MG
     Route: 048
  6. WARFARIN POTASSIUM [Concomitant]
     Indication: CORONARY ARTERY BYPASS
     Dosage: DAILY DOSE: 3.5MG
     Route: 048
  7. HUMIRA [Suspect]
     Dates: end: 20110425
  8. ALLOPURINOL [Concomitant]
     Indication: HYPERURICAEMIA
     Route: 048
  9. ASPIRIN [Concomitant]
     Indication: CORONARY ARTERY BYPASS
     Dosage: DAILY DOSE: 100MG
     Route: 048
  10. GLYBURIDE [Concomitant]
     Indication: DIABETES MELLITUS
     Dosage: DAILY DOSE: 5MG
     Route: 048
  11. AMLODIPINE BESYLATE [Concomitant]
     Indication: HYPERTENSION
     Dosage: DAILY DOSE: 2.5MG
     Route: 048

REACTIONS (8)
  - ERYSIPELAS [None]
  - EYELID OEDEMA [None]
  - CARDIAC FAILURE CONGESTIVE [None]
  - PNEUMONIA ASPIRATION [None]
  - DYSPNOEA [None]
  - OXYGEN SATURATION DECREASED [None]
  - RESPIRATORY ARREST [None]
  - LOSS OF CONSCIOUSNESS [None]
